FAERS Safety Report 16608282 (Version 1)
Quarter: 2019Q3

REPORT INFORMATION
  Report Type: Spontaneous
  Country: CA (occurrence: CA)
  Receive Date: 20190722
  Receipt Date: 20190722
  Transmission Date: 20191004
  Serious: Yes (Life-Threatening, Hospitalization)
  Sender: FDA-Public Use
  Company Number: CA-PFIZER INC-2019310121

PATIENT
  Age: 70 Year
  Sex: Male
  Weight: 63.49 kg

DRUGS (1)
  1. FRAGMIN [Suspect]
     Active Substance: DALTEPARIN SODIUM
     Indication: MYOCARDIAL INFARCTION
     Dosage: 50000 IU, 2X/DAY
     Route: 058

REACTIONS (4)
  - Pain in extremity [Recovered/Resolved]
  - Haemorrhage [Recovered/Resolved]
  - Peripheral swelling [Recovered/Resolved]
  - Compartment syndrome [Recovered/Resolved]
